FAERS Safety Report 22536984 (Version 1)
Quarter: 2023Q2

REPORT INFORMATION
  Report Type: Spontaneous
  Country: US (occurrence: US)
  Receive Date: 20230608
  Receipt Date: 20230608
  Transmission Date: 20230722
  Serious: Yes (Death, Life-Threatening, Hospitalization, Other)
  Sender: FDA-Public Use
  Company Number: US-JUBILANT CADISTA PHARMACEUTICALS-2023JUB00214

PATIENT
  Age: 69 Year
  Sex: Male

DRUGS (3)
  1. METHYLPREDNISOLONE [Suspect]
     Active Substance: METHYLPREDNISOLONE
     Indication: Breakthrough COVID-19
     Dosage: 40 MG, 2X/DAY, EVERY 12 HOUR
  2. OXYGEN [Concomitant]
     Active Substance: OXYGEN
     Dosage: HIGH-FLOW
  3. REMDESIVIR [Concomitant]
     Active Substance: REMDESIVIR
     Indication: Breakthrough COVID-19

REACTIONS (8)
  - Septic shock [Fatal]
  - Disease progression [Unknown]
  - Diverticulitis intestinal perforated [Unknown]
  - Pelvic abscess [Unknown]
  - Pneumomediastinum [Unknown]
  - Intestinal barrier dysfunction [Unknown]
  - Mesenteric abscess [Unknown]
  - Pneumoperitoneum [Unknown]
